FAERS Safety Report 6767823-5 (Version None)
Quarter: 2010Q2

REPORT INFORMATION
  Report Type: 
  Country: None (occurrence: None)
  Receive Date: 20100614
  Receipt Date: 20100610
  Transmission Date: 20101027
  Serious: Yes (Hospitalization)
  Sender: FDA-Public Use
  Company Number: IT-ROCHE-708660

PATIENT
  Sex: Male

DRUGS (4)
  1. PEGINTERFERON ALFA-2A [Suspect]
     Indication: HEPATITIS C
     Route: 058
     Dates: start: 20090309, end: 20090713
  2. PEGINTERFERON ALFA-2A [Suspect]
     Route: 058
     Dates: start: 20090727
  3. COPEGUS [Concomitant]
     Dates: start: 20090309, end: 20090715
  4. COPEGUS [Concomitant]
     Dates: start: 20090727

REACTIONS (1)
  - ORCHITIS [None]
